FAERS Safety Report 9472735 (Version 1)
Quarter: 2013Q3

REPORT INFORMATION
  Report Type: Spontaneous
  Country: GB (occurrence: GB)
  Receive Date: 20130823
  Receipt Date: 20130823
  Transmission Date: 20140515
  Serious: Yes (Death)
  Sender: FDA-Public Use
  Company Number: GB-SANOFI-AVENTIS-2013SA083193

PATIENT
  Age: 6 Year
  Sex: Male

DRUGS (3)
  1. FUROSEMIDE [Suspect]
     Indication: URINE OUTPUT DECREASED
     Dosage: INFUSION
     Route: 065
  2. HYDROMORPHONE [Concomitant]
     Indication: ANALGESIC THERAPY
  3. EDECRIN [Concomitant]
     Route: 042

REACTIONS (8)
  - Hyponatraemia [Fatal]
  - Depressed level of consciousness [Fatal]
  - Hypersomnia [Fatal]
  - Oliguria [Fatal]
  - Vomiting [Fatal]
  - Convulsion [Fatal]
  - Cognitive disorder [Fatal]
  - Brain oedema [Fatal]
